FAERS Safety Report 11664724 (Version 1)
Quarter: 2015Q4

REPORT INFORMATION
  Report Type: Spontaneous
  Country: US (occurrence: US)
  Receive Date: 20151027
  Receipt Date: 20151027
  Transmission Date: 20160304
  Serious: No
  Sender: FDA-Public Use
  Company Number: US-ELI_LILLY_AND_COMPANY-US200912000823

PATIENT
  Sex: Female

DRUGS (5)
  1. FORTEO [Suspect]
     Active Substance: TERIPARATIDE
     Dates: start: 200911
  2. FORTEO [Suspect]
     Active Substance: TERIPARATIDE
     Dates: start: 200906, end: 2009
  3. FORTEO [Suspect]
     Active Substance: TERIPARATIDE
     Dates: start: 200910, end: 200911
  4. DOXYFENE [Concomitant]
     Indication: GASTROINTESTINAL HYPOMOTILITY
  5. LORAZEPAM. [Concomitant]
     Active Substance: LORAZEPAM
     Indication: INSOMNIA
     Dosage: UNK, AS NEEDED

REACTIONS (13)
  - Decreased appetite [Not Recovered/Not Resolved]
  - Injection site haemorrhage [Unknown]
  - Vision blurred [Not Recovered/Not Resolved]
  - Nephrolithiasis [Recovered/Resolved]
  - Blood urine present [Recovered/Resolved]
  - Back pain [Recovered/Resolved]
  - Pain in extremity [Not Recovered/Not Resolved]
  - Diarrhoea [Not Recovered/Not Resolved]
  - Fatigue [Not Recovered/Not Resolved]
  - Vascular pain [Not Recovered/Not Resolved]
  - Vein disorder [Not Recovered/Not Resolved]
  - Feeling abnormal [Not Recovered/Not Resolved]
  - Weight decreased [Not Recovered/Not Resolved]

NARRATIVE: CASE EVENT DATE: 2009
